FAERS Safety Report 8788627 (Version 1)
Quarter: 2012Q4

REPORT INFORMATION
  Report Type: 
  Country: FI (occurrence: FI)
  Receive Date: 20120916
  Receipt Date: 20120916
  Transmission Date: 20130627
  Serious: Yes (Other)
  Sender: FDA-Public Use
  Company Number: PHHY2012FI079783

PATIENT

DRUGS (3)
  1. ZOMETA [Suspect]
     Indication: OSTEOGENESIS IMPERFECTA
     Dosage: 0.05 mg/kg up to 4.0 mg/day over 45 min once in 6 months
     Route: 042
  2. VITAMIN D3 [Concomitant]
     Dosage: 20 ug, daily
  3. CALCIUM [Concomitant]
     Dosage: 500 mg, 1-2 times daily

REACTIONS (1)
  - Compression fracture [Unknown]
